FAERS Safety Report 4419688-4 (Version None)
Quarter: 2004Q3

REPORT INFORMATION
  Report Type: 
  Country: None (occurrence: None)
  Receive Date: 20040804
  Receipt Date: 20040728
  Transmission Date: 20050211
  Serious: Yes (Hospitalization)
  Sender: FDA-Public Use
  Company Number: 200410378BNE

PATIENT
  Age: 55 Year
  Sex: Male

DRUGS (5)
  1. ASPIRIN [Suspect]
     Indication: ANTIPLATELET THERAPY
     Dosage: 75 MG, TOTAL DAILY, ORAL
     Route: 048
     Dates: end: 20040524
  2. LANSOPRAZOLE [Concomitant]
  3. MIRTAZAPINE [Concomitant]
  4. ATENOLOL [Concomitant]
  5. SIMVASTATIN [Concomitant]

REACTIONS (6)
  - CHEST PAIN [None]
  - DUODENITIS [None]
  - GASTRIC ULCER [None]
  - GASTRITIS [None]
  - HAEMOGLOBIN INCREASED [None]
  - MELAENA [None]
